FAERS Safety Report 15201101 (Version 5)
Quarter: 2019Q2

REPORT INFORMATION
  Report Type: Spontaneous
  Country: US (occurrence: US)
  Receive Date: 20180726
  Receipt Date: 20190416
  Transmission Date: 20190711
  Serious: No
  Sender: FDA-Public Use
  Company Number: US-PFIZER INC-2018295564

PATIENT
  Age: 16 Year
  Sex: Male
  Weight: 24.4 kg

DRUGS (6)
  1. GENOTROPIN [Suspect]
     Active Substance: SOMATROPIN
     Dosage: 1 MG, DAILY
     Dates: start: 20180403
  2. GENOTROPIN [Suspect]
     Active Substance: SOMATROPIN
     Indication: BODY HEIGHT BELOW NORMAL
     Dosage: 0.5 MG, UNK
  3. GENOTROPIN [Suspect]
     Active Substance: SOMATROPIN
     Dosage: 0.8 MG INJECTION TO LEG OR ARM MUSCLE ONCE A DAY AT NIGHT TIME
  4. GENOTROPIN [Suspect]
     Active Substance: SOMATROPIN
     Dosage: INTERMITTENTLY ADMINISTERING 0.8MG OR 0.6MG
  5. GENOTROPIN [Suspect]
     Active Substance: SOMATROPIN
     Dosage: 0.8 MG, 1X/DAY
  6. GENOTROPIN [Suspect]
     Active Substance: SOMATROPIN
     Indication: BLOOD GROWTH HORMONE ABNORMAL
     Dosage: 1 MG, UNK
     Dates: start: 2018

REACTIONS (13)
  - Headache [Unknown]
  - Intentional product misuse [Unknown]
  - Asthenia [Unknown]
  - Fatigue [Unknown]
  - Epistaxis [Unknown]
  - Arthralgia [Unknown]
  - Product dose omission [Unknown]
  - Device failure [Unknown]
  - Pain [Unknown]
  - Oedema peripheral [Unknown]
  - Product prescribing error [Unknown]
  - Wrong technique in device usage process [Unknown]
  - Insulin-like growth factor decreased [Unknown]
